FAERS Safety Report 25950128 (Version 1)
Quarter: 2025Q4

REPORT INFORMATION
  Report Type: Report from Study
  Country: US (occurrence: US)
  Receive Date: 20251022
  Receipt Date: 20251022
  Transmission Date: 20260117
  Serious: Yes (Other)
  Sender: ABBVIE
  Company Number: US-ABBVIE-6509250

PATIENT
  Sex: Male

DRUGS (1)
  1. HUMIRA [Suspect]
     Active Substance: ADALIMUMAB
     Indication: Crohn^s disease
     Dosage: DOSE FORM: SOLUTION FOR INJECTION IN PRE-FILLED PEN
     Route: 058
     Dates: start: 2002

REACTIONS (5)
  - Arthropathy [Recovering/Resolving]
  - Spinal disorder [Recovering/Resolving]
  - Peripheral nerve injury [Recovering/Resolving]
  - Pain [Unknown]
  - Parkinson^s disease [Unknown]
